FAERS Safety Report 5202570-2 (Version None)
Quarter: 2006Q4

REPORT INFORMATION
  Report Type: 
  Country: None (occurrence: None)
  Receive Date: 20061016
  Receipt Date: 20060824
  Transmission Date: 20070319
  Serious: No
  Sender: FDA-Public Use
  Company Number: 2006SP003115

PATIENT
  Age: 68 Year
  Sex: Male
  Weight: 108.8633 kg

DRUGS (7)
  1. LUNESTA [Suspect]
     Indication: SLEEP DISORDER
     Dosage: SEE IMAGE
     Route: 048
     Dates: start: 20050801, end: 20050101
  2. LUNESTA [Suspect]
     Indication: SLEEP DISORDER
     Dosage: SEE IMAGE
     Route: 048
     Dates: start: 20060822
  3. LISINOPRIL [Concomitant]
  4. NIACIN [Concomitant]
  5. ATORVASTATIN CALCIUM [Concomitant]
  6. PLAVIX [Concomitant]
  7. ASPIRIN [Concomitant]

REACTIONS (3)
  - DRUG INEFFECTIVE [None]
  - DYSGEUSIA [None]
  - INSOMNIA [None]
